FAERS Safety Report 6536881-5 (Version None)
Quarter: 2010Q1

REPORT INFORMATION
  Report Type: 
  Country: None (occurrence: None)
  Receive Date: 20100113
  Receipt Date: 20100104
  Transmission Date: 20100710
  Serious: Yes (Hospitalization, Other)
  Sender: FDA-Public Use
  Company Number: US-B.I. PHARMACEUTICALS,INC./RIDGEFIELD-2009-BP-13219BP

PATIENT
  Age: 45 Year
  Sex: Male
  Weight: 67.13 kg

DRUGS (8)
  1. VIRAMUNE [Suspect]
     Indication: HIV INFECTION
     Route: 048
     Dates: start: 20091006, end: 20091111
  2. H1N1 VACCINE [Suspect]
     Dates: start: 20091103
  3. VITAMIN B COMPLEX CAP [Concomitant]
     Dates: start: 20090310
  4. GABAPENTIN [Concomitant]
     Dates: start: 20090310
  5. AZITHROMYCIN [Concomitant]
     Dates: start: 20091022, end: 20091201
  6. BENZONATATE [Concomitant]
     Indication: COUGH
     Dates: start: 20090818, end: 20091201
  7. PROBALANCE LIQUID [Concomitant]
     Indication: WEIGHT CONTROL
     Dates: start: 20090924, end: 20091207
  8. TRUVADA [Concomitant]
     Dates: start: 20091006, end: 20091223

REACTIONS (8)
  - ACARODERMATITIS [None]
  - HYPERSENSITIVITY [None]
  - LYMPHADENITIS [None]
  - LYMPHADENOPATHY [None]
  - OEDEMA PERIPHERAL [None]
  - PARAESTHESIA ORAL [None]
  - RASH [None]
  - THIRST [None]
